FAERS Safety Report 4293565-4 (Version None)
Quarter: 2004Q1

REPORT INFORMATION
  Report Type: 
  Country: None (occurrence: None)
  Receive Date: 20040126
  Receipt Date: 20031021
  Transmission Date: 20041129
  Serious: No
  Sender: FDA-Public Use
  Company Number: USA031049829

PATIENT
  Age: 78 Year
  Sex: Female
  Weight: 63 kg

DRUGS (8)
  1. FORTEO [Suspect]
     Indication: OSTEOPOROSIS
     Dates: start: 20021201, end: 20031006
  2. LASIX [Concomitant]
  3. NASONEX [Concomitant]
  4. ZOCOR [Concomitant]
  5. ALLOPURINOL [Concomitant]
  6. SEREVENT [Concomitant]
  7. FLOVENT [Concomitant]
  8. ANTIACID [Concomitant]

REACTIONS (1)
  - BLOOD ALKALINE PHOSPHATASE INCREASED [None]
